FAERS Safety Report 21299039 (Version 5)
Quarter: 2022Q3

REPORT INFORMATION
  Report Type: Spontaneous
  Country: SG (occurrence: None)
  Receive Date: 20220906
  Receipt Date: 20220929
  Transmission Date: 20221027
  Serious: Yes (Other)
  Sender: FDA-Public Use
  Company Number: SG-ROCHE-3171739

PATIENT
  Age: 59 Year
  Sex: Female

DRUGS (1)
  1. TECENTRIQ [Suspect]
     Active Substance: ATEZOLIZUMAB
     Indication: Lung neoplasm malignant
     Route: 065

REACTIONS (3)
  - Malignant neoplasm progression [Unknown]
  - Cerebral disorder [Unknown]
  - Drug ineffective [Unknown]
